FAERS Safety Report 10483716 (Version 1)
Quarter: 2014Q3

REPORT INFORMATION
  Report Type: Report from Study
  Country: US (occurrence: US)
  Receive Date: 20140930
  Receipt Date: 20140930
  Transmission Date: 20150326
  Serious: No
  Sender: FDA-Public Use
  Company Number: US-ALEXION-A201305792

PATIENT
  Sex: Female

DRUGS (3)
  1. SOLIRIS [Suspect]
     Active Substance: ECULIZUMAB
     Dosage: 600 MG, Q2W
     Route: 042
     Dates: start: 20130329
  2. SOLIRIS [Suspect]
     Active Substance: ECULIZUMAB
     Dosage: 700 MG, UNK
     Route: 042
     Dates: start: 20130510
  3. SOLIRIS [Suspect]
     Active Substance: ECULIZUMAB
     Indication: PAROXYSMAL NOCTURNAL HAEMOGLOBINURIA
     Dosage: UNK
     Route: 042
     Dates: end: 20130329

REACTIONS (5)
  - Blood lactate dehydrogenase increased [Unknown]
  - Incorrect dose administered [Unknown]
  - Fatigue [Unknown]
  - Pain in extremity [Unknown]
  - Haemolysis [Unknown]
